FAERS Safety Report 4737924-1 (Version None)
Quarter: 2005Q3

REPORT INFORMATION
  Report Type: 
  Country: None (occurrence: None)
  Receive Date: 20050805
  Receipt Date: 20050725
  Transmission Date: 20060218
  Serious: Yes (Other)
  Sender: FDA-Public Use
  Company Number: B0388811A

PATIENT
  Sex: Female

DRUGS (2)
  1. LITHIUM SALT (FORMULATION UNKNOWN) (LITHIUM SALT) [Suspect]
     Indication: SCHIZOAFFECTIVE DISORDER
  2. NEUROLEPTIC (NEUROLEPTIC) [Suspect]
     Indication: SCHIZOAFFECTIVE DISORDER

REACTIONS (3)
  - ENCEPHALOPATHY [None]
  - NEUROLEPTIC MALIGNANT SYNDROME [None]
  - NEUROTOXICITY [None]
